FAERS Safety Report 12991322 (Version 1)
Quarter: 2016Q4

REPORT INFORMATION
  Report Type: Not Available
  Country: CA (occurrence: CA)
  Receive Date: 20161201
  Receipt Date: 20161201
  Transmission Date: 20170207
  Serious: Yes (Other)
  Sender: FDA-Public Use
  Company Number: CA-PURDUE PHARMA-CAN-2016-0007230

PATIENT
  Sex: Male

DRUGS (3)
  1. HYDROMORPHONE HYDROCHLORIDE. [Suspect]
     Active Substance: HYDROMORPHONE HYDROCHLORIDE
     Indication: PAIN
     Dosage: UNK
     Route: 065
  2. ADVAGRAF [Suspect]
     Active Substance: TACROLIMUS
     Indication: RENAL TRANSPLANT
     Dosage: 7 MG, DAILY
     Route: 048
  3. ADVAGRAF [Suspect]
     Active Substance: TACROLIMUS
     Dosage: 2.5 MG, DAILY
     Route: 048

REACTIONS (4)
  - Drug hypersensitivity [Unknown]
  - Rash generalised [Unknown]
  - Immunosuppressant drug level increased [Unknown]
  - Rash pruritic [Unknown]
